FAERS Safety Report 8845330 (Version 1)
Quarter: 2012Q4

REPORT INFORMATION
  Report Type: Spontaneous
  Country: BE (occurrence: None)
  Receive Date: 20121015
  Receipt Date: 20121015
  Transmission Date: 20130627
  Serious: Yes (Other)
  Sender: FDA-Public Use
  Company Number: BE-009785

PATIENT
  Age: 22 Year
  Sex: Male

DRUGS (1)
  1. PICOPREP [Suspect]
     Indication: BOWEL PREPARATION
     Route: 048
     Dates: start: 20120819, end: 20120819

REACTIONS (4)
  - Renal failure acute [None]
  - Overdose [None]
  - Abdominal pain [None]
  - Vomiting [None]
